FAERS Safety Report 21047456 (Version 1)
Quarter: 2022Q3

REPORT INFORMATION
  Report Type: Spontaneous
  Country: US (occurrence: US)
  Receive Date: 20220706
  Receipt Date: 20220706
  Transmission Date: 20221027
  Serious: No
  Sender: FDA-Public Use
  Company Number: US-drreddys-SPO/USA/22/0151881

PATIENT
  Age: 14 Year
  Sex: Female

DRUGS (1)
  1. ACCUTANE [Suspect]
     Active Substance: ISOTRETINOIN
     Indication: Acne
     Dosage: RMA ISSUE DATE: 24/FEBRUARY/2022 10:24:17 AM, 23/MARCH/2022 01:45:27 PM, 27/APRIL/2022 04:40:00 PM,

REACTIONS (1)
  - Blood triglycerides increased [Unknown]
